FAERS Safety Report 7504399-9 (Version None)
Quarter: 2011Q2

REPORT INFORMATION
  Report Type: 
  Country: None (occurrence: None)
  Receive Date: 20110525
  Receipt Date: 20110510
  Transmission Date: 20111010
  Serious: Yes (Death)
  Sender: FDA-Public Use
  Company Number: CL-ROCHE-710984

PATIENT
  Sex: Female
  Weight: 69.5 kg

DRUGS (3)
  1. DOCETAXEL [Suspect]
     Indication: BREAST CANCER
     Dosage: 138 UNK, Q3W
     Route: 042
     Dates: start: 20090904
  2. TRASTUZUMAB [Suspect]
     Indication: BREAST CANCER
     Dosage: 450 UNK, Q3W
     Route: 042
     Dates: start: 20090904
  3. TRASTUZUMAB EMTANSINE [Suspect]
     Indication: BREAST CANCER
     Dosage: 450 UNK, SINGLE
     Route: 042
     Dates: start: 20100527

REACTIONS (1)
  - SUDDEN DEATH [None]
